FAERS Safety Report 14775646 (Version 1)
Quarter: 2018Q2

REPORT INFORMATION
  Report Type: Spontaneous
  Country: AU (occurrence: AU)
  Receive Date: 20180418
  Receipt Date: 20180418
  Transmission Date: 20180711
  Serious: Yes (Death)
  Sender: FDA-Public Use
  Company Number: AU-PFIZER INC-2018157412

PATIENT
  Age: 71 Year
  Sex: Female

DRUGS (1)
  1. XELJANZ [Suspect]
     Active Substance: TOFACITINIB CITRATE
     Indication: RHEUMATOID ARTHRITIS
     Dosage: 5 MG, 2X/DAY
     Dates: start: 20180112

REACTIONS (5)
  - Embolism [Fatal]
  - Rheumatoid arthritis [Fatal]
  - Disease progression [Fatal]
  - Arteriosclerosis [Fatal]
  - Pulmonary embolism [Fatal]
